FAERS Safety Report 10652953 (Version 1)
Quarter: 2014Q4

REPORT INFORMATION
  Report Type: Spontaneous
  Country: US (occurrence: US)
  Receive Date: 20141215
  Receipt Date: 20141215
  Transmission Date: 20150529
  Serious: No
  Sender: FDA-Public Use
  Company Number: US-PFIZER INC-2014342122

PATIENT
  Age: 46 Year
  Sex: Female
  Weight: 63 kg

DRUGS (1)
  1. PREMARIN [Suspect]
     Active Substance: ESTROGENS, CONJUGATED
     Indication: VULVOVAGINAL DRYNESS
     Dosage: 2 G, DAILY (2.0 GRAMS INTRAVAGINALLY EACH DAY CREAM)
     Route: 067
     Dates: start: 20141203

REACTIONS (7)
  - Dizziness [Unknown]
  - Vulvovaginal discomfort [Unknown]
  - Vaginal mucosal blistering [Not Recovered/Not Resolved]
  - Vulvovaginal burning sensation [Unknown]
  - Back pain [Not Recovered/Not Resolved]
  - Vaginal inflammation [Not Recovered/Not Resolved]
  - Vulvovaginal pruritus [Not Recovered/Not Resolved]

NARRATIVE: CASE EVENT DATE: 201412
